FAERS Safety Report 25593917 (Version 2)
Quarter: 2025Q3

REPORT INFORMATION
  Report Type: Report from Study
  Country: US (occurrence: US)
  Receive Date: 20250723
  Receipt Date: 20250826
  Transmission Date: 20251021
  Serious: Yes (Other)
  Sender: ALEXION PHARMACEUTICALS
  Company Number: US-AstraZeneca-CH-00912110A

PATIENT
  Sex: Female

DRUGS (1)
  1. ACALABRUTINIB [Suspect]
     Active Substance: ACALABRUTINIB
     Route: 065

REACTIONS (8)
  - Hallucination [Unknown]
  - Fatigue [Unknown]
  - Headache [Unknown]
  - Brain fog [Unknown]
  - Lymphoedema [Unknown]
  - Peripheral swelling [Unknown]
  - Joint instability [Unknown]
  - Muscular weakness [Unknown]
